FAERS Safety Report 8166723-6 (Version None)
Quarter: 2012Q1

REPORT INFORMATION
  Report Type: 
  Country: None (occurrence: None)
  Receive Date: 20120227
  Receipt Date: 20120127
  Transmission Date: 20120608
  Serious: Yes (Death, Other)
  Sender: FDA-Public Use
  Company Number: GR-ROCHE-1034917

PATIENT
  Age: 76 Year
  Sex: Male

DRUGS (6)
  1. CARBOPLATIN [Suspect]
     Indication: GASTRIC CANCER
     Dosage: 5 AUC ON DAY 1
  2. FILGRASTIM [Suspect]
     Indication: PROPHYLAXIS
  3. CARBOPLATIN [Suspect]
     Dosage: REGIMEN:2
  4. DOCETAXEL [Suspect]
     Indication: GASTRIC CANCER
     Dosage: ON DAY 1
  5. CAPECITABINE [Suspect]
     Indication: GASTRIC CANCER
     Dosage: ON DAY 1 TO 5
  6. DOCETAXEL [Suspect]
     Dosage: REGIMEN :2

REACTIONS (9)
  - LEPROSY [None]
  - SKIN LESION [None]
  - DISEASE PROGRESSION [None]
  - NEUTROPENIA [None]
  - NECROSIS [None]
  - THROMBOTIC MICROANGIOPATHY [None]
  - GANGRENE [None]
  - DRUG INEFFECTIVE [None]
  - CHRONIC GRANULOMATOUS DISEASE [None]
